FAERS Safety Report 15641098 (Version 1)
Quarter: 2018Q4

REPORT INFORMATION
  Report Type: Spontaneous
  Country: US (occurrence: US)
  Receive Date: 20181120
  Receipt Date: 20181120
  Transmission Date: 20190205
  Serious: Yes (Other)
  Sender: FDA-Public Use
  Company Number: US-SUNOVION-2018SUN004493

PATIENT
  Age: 36 Year
  Sex: Male
  Weight: 68.27 kg

DRUGS (2)
  1. LATUDA [Suspect]
     Active Substance: LURASIDONE HYDROCHLORIDE
     Indication: BIPOLAR II DISORDER
     Dosage: 60 MG, 1 TAB 30 MINUTES AFTER DINNER/PO
     Route: 048
     Dates: start: 201810
  2. VENLAFAXINE [Concomitant]
     Active Substance: VENLAFAXINE HYDROCHLORIDE
     Dosage: 150 MG, QD
     Route: 048

REACTIONS (7)
  - Muscle twitching [Recovered/Resolved]
  - Loss of consciousness [Recovered/Resolved]
  - Off label use [Unknown]
  - Seizure [Recovered/Resolved]
  - Mydriasis [Recovered/Resolved]
  - Syncope [Recovered/Resolved]
  - Blood pressure increased [Recovered/Resolved]

NARRATIVE: CASE EVENT DATE: 201810
